FAERS Safety Report 20487738 (Version 5)
Quarter: 2022Q2

REPORT INFORMATION
  Report Type: Spontaneous
  Country: US (occurrence: US)
  Receive Date: 20220218
  Receipt Date: 20220415
  Transmission Date: 20220720
  Serious: Yes (Hospitalization, Other)
  Sender: FDA-Public Use
  Company Number: US-UNITED THERAPEUTICS-UNT-2022-003422

PATIENT
  Age: 58 Year
  Sex: Female
  Weight: 78.912 kg

DRUGS (5)
  1. REMODULIN [Suspect]
     Active Substance: TREPROSTINIL
     Indication: Pulmonary arterial hypertension
     Dosage: UNK, CONTINUING
     Route: 058
     Dates: start: 20210902
  2. REMODULIN [Suspect]
     Active Substance: TREPROSTINIL
     Dosage: 0.052 ?G/KG, CONTINUING
     Route: 058
  3. REMODULIN [Suspect]
     Active Substance: TREPROSTINIL
     Dosage: 0.048 ?G/KG, CONTINUING
     Route: 058
  4. ADCIRCA [Concomitant]
     Active Substance: TADALAFIL
     Indication: Pulmonary arterial hypertension
     Dosage: UNK
     Route: 065
  5. LETAIRIS [Concomitant]
     Active Substance: AMBRISENTAN
     Indication: Product used for unknown indication
     Dosage: UNK
     Route: 065

REACTIONS (20)
  - Hypoxia [Unknown]
  - Hypotension [Unknown]
  - Paraesthesia [Unknown]
  - Abdominal pain upper [Unknown]
  - Dyspepsia [Unknown]
  - Incorrect drug administration rate [Unknown]
  - Overdose [Unknown]
  - Visual impairment [Unknown]
  - Cardiac disorder [Unknown]
  - Somnolence [Unknown]
  - Abdominal discomfort [Unknown]
  - Fatigue [Unknown]
  - Hypoaesthesia [Unknown]
  - Infusion site warmth [Unknown]
  - Infusion site erythema [Unknown]
  - Infusion site nodule [Unknown]
  - Pain in jaw [Unknown]
  - Dyspnoea [Unknown]
  - Pyrexia [Unknown]
  - Product administration error [Unknown]

NARRATIVE: CASE EVENT DATE: 20220201
